FAERS Safety Report 6310063-4 (Version None)
Quarter: 2009Q3

REPORT INFORMATION
  Report Type: 
  Country: None (occurrence: None)
  Receive Date: 20090814
  Receipt Date: 20090805
  Transmission Date: 20100115
  Serious: Yes (Death)
  Sender: FDA-Public Use
  Company Number: US-ABBOTT-09P-163-0589474-00

PATIENT
  Sex: Female

DRUGS (5)
  1. SYNTHROID [Suspect]
     Indication: HYPOTHYROIDISM
     Dates: start: 20041001
  2. CYMBALTA [Suspect]
     Indication: DEPRESSION
     Route: 065
     Dates: start: 20070708
  3. CYMBALTA [Suspect]
     Indication: NEURALGIA
  4. CYMBALTA [Suspect]
     Indication: BACK PAIN
  5. DIOVAN [Concomitant]
     Indication: BLOOD PRESSURE
     Dates: start: 20080430

REACTIONS (3)
  - CARDIAC DEATH [None]
  - DEATH [None]
  - OFF LABEL USE [None]
